FAERS Safety Report 16794386 (Version 1)
Quarter: 2019Q3

REPORT INFORMATION
  Report Type: Report from Study
  Country: ES (occurrence: ES)
  Receive Date: 20190911
  Receipt Date: 20190911
  Transmission Date: 20191005
  Serious: Yes (Other)
  Sender: FDA-Public Use
  Company Number: ES-TEVA-2019-ES-1105202

PATIENT

DRUGS (1)
  1. EFAVIRENZ W/ EMTRICITABINE W/ TENOFOVIR [Suspect]
     Active Substance: EFAVIRENZ\EMTRICITABINE\TENOFOVIR DISOPROXIL FUMARATE
     Indication: HIV INFECTION
     Route: 065

REACTIONS (3)
  - Hepatotoxicity [Recovered/Resolved]
  - Neurotoxicity [Recovered/Resolved]
  - Drug interaction [Unknown]
